FAERS Safety Report 4940258-3 (Version None)
Quarter: 2006Q1

REPORT INFORMATION
  Report Type: 
  Country: None (occurrence: None)
  Receive Date: 20060310
  Receipt Date: 20050921
  Transmission Date: 20060701
  Serious: Yes (Hospitalization, Disabling)
  Sender: FDA-Public Use
  Company Number: US-MERCK-0509USA03209

PATIENT
  Age: 61 Year
  Sex: Male
  Weight: 97 kg

DRUGS (7)
  1. VIOXX [Suspect]
     Indication: ARTHRITIS
     Route: 048
     Dates: start: 20010622, end: 20021006
  2. CLARINEX [Concomitant]
     Route: 065
  3. ASPIRIN [Concomitant]
     Route: 048
  4. GLUCOPHAGE [Concomitant]
     Route: 065
     Dates: end: 20021007
  5. HYDROCHLOROTHIAZIDE [Concomitant]
     Route: 065
  6. ZOCOR [Concomitant]
     Route: 048
  7. PLENDIL [Concomitant]
     Route: 048

REACTIONS (19)
  - BLOOD GLUCOSE INCREASED [None]
  - CARDIAC FAILURE CONGESTIVE [None]
  - CARDIOMYOPATHY [None]
  - CEREBROVASCULAR ACCIDENT [None]
  - COUGH [None]
  - DIPLOPIA [None]
  - DYSPNOEA [None]
  - FALL [None]
  - FATIGUE [None]
  - HYPERCHOLESTEROLAEMIA [None]
  - HYPERLIPIDAEMIA [None]
  - IMPINGEMENT SYNDROME [None]
  - LIMB INJURY [None]
  - MICTURITION URGENCY [None]
  - NAUSEA [None]
  - POLLAKIURIA [None]
  - TENDONITIS [None]
  - VERTIGO [None]
  - VOMITING [None]
